FAERS Safety Report 8087926-5 (Version None)
Quarter: 2012Q1

REPORT INFORMATION
  Report Type: 
  Country: None (occurrence: None)
  Receive Date: 20120130
  Receipt Date: 20120123
  Transmission Date: 20120608
  Serious: Yes (Hospitalization)
  Sender: FDA-Public Use
  Company Number: AT-BRISTOL-MYERS SQUIBB COMPANY-16364432

PATIENT
  Age: 69 Year
  Sex: Female
  Weight: 75 kg

DRUGS (13)
  1. ORENCIA [Suspect]
     Indication: RHEUMATOID ARTHRITIS
  2. CALCIUM CARBONATE + CHOLECALCIFEROL [Suspect]
  3. FOLSAN [Suspect]
     Dosage: 5MG
     Route: 048
  4. CAPTOPRIL [Suspect]
  5. ACETYLCYSTEINE [Suspect]
  6. PREDNISOLONE [Suspect]
  7. SPIRIVA [Suspect]
     Dosage: 18MG CAPSULES
     Route: 055
  8. METHOTREXATE [Suspect]
  9. SERETIDE [Suspect]
     Dosage: SERETIDE DISKUS
     Route: 055
  10. PANTOPRAZOLE SODIUM [Suspect]
     Dosage: ONE DOSAGE FORM PER DAY
  11. BISOPROLOL FUMARATE [Suspect]
     Dosage: 5MG,
  12. VERAPAMIL [Suspect]
  13. MARCOUMAR [Suspect]

REACTIONS (2)
  - WEIGHT INCREASED [None]
  - HAEMATOMA [None]
